FAERS Safety Report 24575001 (Version 1)
Quarter: 2024Q4

REPORT INFORMATION
  Report Type: Spontaneous
  Country: CA (occurrence: CA)
  Receive Date: 20241104
  Receipt Date: 20241104
  Transmission Date: 20250114
  Serious: Yes (Other)
  Sender: CELLTRION
  Company Number: CA-PFIZER INC-202400017557

PATIENT

DRUGS (11)
  1. INFLECTRA [Suspect]
     Active Substance: INFLIXIMAB-DYYB
     Indication: Crohn^s disease
     Dosage: 10 MG/KG, INDUCTION WEEK 0, 2, 6 THEN MAINTENANCE EVERY 4 WEEKS. HOSPITAL START 19AUG2023
     Route: 042
     Dates: start: 20230819, end: 20231212
  2. INFLECTRA [Suspect]
     Active Substance: INFLIXIMAB-DYYB
     Dosage: 10 MG/KG, EVERY 4 WEEK (RE-INDUCTION  WEEK 0,2,6 THEN EVERY 4 WEEK)
     Route: 042
     Dates: start: 20240103
  3. INFLECTRA [Suspect]
     Active Substance: INFLIXIMAB-DYYB
     Dosage: 880 MG, AFTER 1 WEEK AND 6 DAYS (WEEK 2 REINDUCTION)
     Route: 042
     Dates: start: 20240116
  4. INFLECTRA [Suspect]
     Active Substance: INFLIXIMAB-DYYB
     Dosage: 10 MG/KG, RE-INDUCTION WEEK 0,2,6 THEN EVERY 4 WEEK (880MG, 3 WEEKS AND 4 DAYS)
     Route: 042
     Dates: start: 20240408
  5. INFLECTRA [Suspect]
     Active Substance: INFLIXIMAB-DYYB
     Dosage: 10 MG/KG (RE-INDUCTION WEEK 0,2,6 THEN EVERY 4 WEEK)
     Route: 042
     Dates: start: 20240829
  6. INFLECTRA [Suspect]
     Active Substance: INFLIXIMAB-DYYB
     Dosage: 865 MG, EVERY 4 WEEKS (10 MG/KG, RE-INDUCTION WEEK 0,2,6 THEN EVERY 4 WEEK)
     Route: 042
     Dates: start: 20240926
  7. INFLECTRA [Suspect]
     Active Substance: INFLIXIMAB-DYYB
     Dosage: 895 MG, AFTER 4 WEEKS, (10MG/KG,RE-INDUCTION WEEK 0,2,6 THEN EVERY 4 WEEK)
     Route: 042
     Dates: start: 20241024
  8. CALCIUM\CHOLECALCIFEROL [Concomitant]
     Active Substance: CALCIUM\CHOLECALCIFEROL
     Dosage: 1 DF
     Dates: start: 202308
  9. PANTOPRAZOLE [Concomitant]
     Active Substance: PANTOPRAZOLE
     Dosage: 40 MG
     Dates: start: 202308
  10. PANTOPRAZOLE SODIUM [Concomitant]
     Active Substance: PANTOPRAZOLE SODIUM
     Dosage: 1 DF
  11. PREDNISONE [Concomitant]
     Active Substance: PREDNISONE
     Dosage: 40 MG
     Dates: start: 202308

REACTIONS (6)
  - Blood pressure increased [Not Recovered/Not Resolved]
  - Vital functions abnormal [Unknown]
  - Fatigue [Not Recovered/Not Resolved]
  - Off label use [Unknown]
  - Off label use [Unknown]
  - Intentional product use issue [Unknown]

NARRATIVE: CASE EVENT DATE: 20240116
